FAERS Safety Report 4549187-0 (Version None)
Quarter: 2005Q1

REPORT INFORMATION
  Report Type: 
  Country: None (occurrence: None)
  Receive Date: 20050111
  Receipt Date: 20041124
  Transmission Date: 20050727
  Serious: Yes (Other)
  Sender: FDA-Public Use
  Company Number: PHNU2004DE03999

PATIENT
  Age: 48 Year
  Sex: Male
  Weight: 56 kg

DRUGS (13)
  1. MYFORTIC [Suspect]
     Indication: RENAL TRANSPLANT
     Dosage: UNK, UNK
     Route: 048
     Dates: start: 20040814
  2. CYCLOSPORINE [Suspect]
     Indication: RENAL TRANSPLANT
     Route: 065
  3. PREDNISOLONE [Suspect]
  4. AZATHIOPRINE [Suspect]
     Route: 065
  5. CELLCEPT [Suspect]
     Indication: RENAL TRANSPLANT
     Dates: start: 20040801, end: 20040813
  6. URBASON [Concomitant]
     Indication: IMMUNOSUPPRESSION
     Dosage: 8 MG, UNK
     Dates: start: 19840906
  7. NEBILET [Concomitant]
     Indication: HYPERTENSION
     Dosage: 5 MG, UNK
     Dates: start: 20040802
  8. BAYOTENSIN [Concomitant]
     Indication: HYPERTENSION
     Dates: start: 20040102
  9. NATRON [Concomitant]
     Dates: start: 20020701
  10. BENAZEPRIL HCL [Concomitant]
     Dates: start: 20040802
  11. CALCITRIOL [Concomitant]
     Indication: BONE DISORDER
     Dates: start: 20040802
  12. CALCIUM GLUCONATE [Concomitant]
     Indication: BONE DISORDER
     Dates: start: 20040802
  13. URAPIDIL [Concomitant]
     Indication: HYPERTENSION
     Dates: start: 20040802

REACTIONS (7)
  - BLOOD CREATININE INCREASED [None]
  - BLOOD PRESSURE INCREASED [None]
  - BLOOD UREA INCREASED [None]
  - CREATININE URINE INCREASED [None]
  - DIARRHOEA [None]
  - TRANSPLANT FAILURE [None]
  - WEIGHT DECREASED [None]
